FAERS Safety Report 8794470 (Version 1)
Quarter: 2012Q4

REPORT INFORMATION
  Report Type: 
  Country: BR (occurrence: BR)
  Receive Date: 20120917
  Receipt Date: 20120917
  Transmission Date: 20130627
  Serious: Yes (Other)
  Sender: FDA-Public Use
  Company Number: PHHY2012BR077960

PATIENT
  Age: 55 Year
  Sex: Female

DRUGS (1)
  1. FORASEQ [Suspect]
     Indication: CHRONIC OBSTRUCTIVE PULMONARY DISEASE
     Dosage: UNK UKN, UNK

REACTIONS (11)
  - Emphysema [Unknown]
  - Dyspnoea [Recovering/Resolving]
  - Obstructive airways disorder [Recovering/Resolving]
  - Breath sounds abnormal [Unknown]
  - Wheezing [Unknown]
  - Bronchial wall thickening [Unknown]
  - Forced expiratory volume decreased [Recovering/Resolving]
  - Chronic obstructive pulmonary disease [Not Recovered/Not Resolved]
  - Vital capacity decreased [Unknown]
  - Condition aggravated [Unknown]
  - Drug ineffective [Unknown]
